FAERS Safety Report 18296692 (Version 1)
Quarter: 2020Q3

REPORT INFORMATION
  Report Type: Spontaneous
  Country: CN (occurrence: CN)
  Receive Date: 20200922
  Receipt Date: 20200922
  Transmission Date: 20201103
  Serious: Yes (Other)
  Sender: FDA-Public Use
  Company Number: CN-PFIZER INC-2020363487

PATIENT
  Age: 78 Year
  Sex: Female
  Weight: 40 kg

DRUGS (2)
  1. METHYLPREDNISOLONE SODIUM SUCCINATE. [Suspect]
     Active Substance: METHYLPREDNISOLONE SODIUM SUCCINATE
     Indication: SCIATIC NERVE NEUROPATHY
  2. METHYLPREDNISOLONE SODIUM SUCCINATE. [Suspect]
     Active Substance: METHYLPREDNISOLONE SODIUM SUCCINATE
     Indication: INTERVERTEBRAL DISC PROTRUSION
     Dosage: 40 MG, 1X/DAY
     Route: 041
     Dates: start: 20200901, end: 20200901

REACTIONS (4)
  - Pallor [Recovered/Resolved]
  - Peripheral coldness [Recovered/Resolved]
  - Chills [Recovered/Resolved]
  - Pyrexia [Recovered/Resolved]

NARRATIVE: CASE EVENT DATE: 20200901
